FAERS Safety Report 24641459 (Version 3)
Quarter: 2025Q4

REPORT INFORMATION
  Report Type: Spontaneous
  Country: CA (occurrence: CA)
  Receive Date: 20241120
  Receipt Date: 20251112
  Transmission Date: 20260117
  Serious: Yes (Hospitalization, Other)
  Sender: Haleon PLC
  Company Number: CA-002147023-NVSC2024CA031835

PATIENT
  Age: 75 Year
  Sex: Female
  Weight: 70 kg

DRUGS (64)
  1. TUMS REGULAR STRENGTH [Suspect]
     Active Substance: CALCIUM CARBONATE
     Indication: Product used for unknown indication
     Dosage: UNK, PATIENT ROA: UNKNOWN
  2. CHOLECALCIFEROL [Concomitant]
     Active Substance: CHOLECALCIFEROL
     Indication: Product used for unknown indication
     Dosage: UNK, PATIENT ROA: UNKNOWN
  3. IPRATROPIUM BROMIDE [Suspect]
     Active Substance: IPRATROPIUM BROMIDE
     Indication: Product used for unknown indication
     Dosage: UNK (INTRA-NASAL), PATIENT ROA: UNKNOWN
  4. IPRATROPIUM BROMIDE [Suspect]
     Active Substance: IPRATROPIUM BROMIDE
     Dosage: UNK, PATIENT ROA: UNKNOWN
  5. IPRATROPIUM [Suspect]
     Active Substance: IPRATROPIUM
     Indication: Rhinitis
     Dosage: UNK (INTRA-NASAL), PATIENT ROA: UNKNOWN
  6. ACETAMINOPHEN\PSEUDOEPHEDRINE [Concomitant]
     Active Substance: ACETAMINOPHEN\PSEUDOEPHEDRINE
     Indication: Product used for unknown indication
     Dosage: UNK, PATIENT ROA: UNKNOWN
  7. PSEUDOEPHEDRINE HYDROCHLORIDE [Suspect]
     Active Substance: PSEUDOEPHEDRINE HYDROCHLORIDE
     Indication: Product used for unknown indication
     Dosage: UNK, PATIENT ROA: UNKNOWN
  8. CLONAZEPAM [Suspect]
     Active Substance: CLONAZEPAM
     Indication: Product used for unknown indication
     Dosage: UNK, PATIENT ROA: UNKNOWN
  9. CLONAZEPAM [Suspect]
     Active Substance: CLONAZEPAM
     Dosage: UNK, PATIENT ROA: UNKNOWN
  10. ACETAMINOPHEN [Concomitant]
     Active Substance: ACETAMINOPHEN
     Indication: Product used for unknown indication
     Dosage: PATIENT ROA: UNKNOWN
  11. NICOTINAMIDE [Suspect]
     Active Substance: NIACINAMIDE
     Indication: Product used for unknown indication
     Dosage: UNK, PATIENT ROA: UNKNOWN
  12. DEXPANTHENOL [Suspect]
     Active Substance: DEXPANTHENOL
     Indication: Product used for unknown indication
     Dosage: UNK, PATIENT ROA: UNKNOWN
  13. NAPROXEN [Suspect]
     Active Substance: NAPROXEN
     Indication: Arthralgia
     Dosage: UNK, PATIENT ROA: UNKNOWN
  14. AZOPT [Suspect]
     Active Substance: BRINZOLAMIDE
     Indication: Glaucoma
     Dosage: UNK (SUSPENSION OPHTHALMIC), PATIENT ROA: UNKNOWN
  15. RIBOFLAVIN [Suspect]
     Active Substance: RIBOFLAVIN
     Indication: Product used for unknown indication
     Dosage: UNK, PATIENT ROA: UNKNOWN
  16. ADVIL [Suspect]
     Active Substance: IBUPROFEN
     Indication: Arthralgia
     Dosage: UNK, PATIENT ROA: UNKNOWN
  17. VITAMIN B6 [Concomitant]
     Active Substance: PYRIDOXINE HYDROCHLORIDE
     Indication: Product used for unknown indication
     Dosage: UNK, PATIENT ROA: UNKNOWN
  18. VITAMIN D3 [Suspect]
     Active Substance: CHOLECALCIFEROL
     Indication: Product used for unknown indication
     Dosage: UNK, PATIENT ROA: UNKNOWN
  19. DICLOFENAC SODIUM [Suspect]
     Active Substance: DICLOFENAC SODIUM
     Indication: Arthralgia
     Dosage: UNK, PATIENT ROA: OPHTHALMIC
  20. TELMISARTAN [Suspect]
     Active Substance: TELMISARTAN
     Indication: Glaucoma
     Dosage: UNK, PATIENT ROA: UNKNOWN
  21. TELMISARTAN [Suspect]
     Active Substance: TELMISARTAN
     Indication: Hypertension
     Dosage: UNK, PATIENT ROA: OPHTHALMIC
  22. ESTRADIOL [Suspect]
     Active Substance: ESTRADIOL
     Indication: Menopausal symptoms
     Dosage: UNK, PATIENT ROA: UNKNOWN
  23. ATORVASTATIN [Concomitant]
     Active Substance: ATORVASTATIN
     Indication: Dyslipidaemia
     Dosage: UNK, PATIENT ROA: UNKNOWN
  24. ZOPICLONE [Suspect]
     Active Substance: ZOPICLONE
     Indication: Arthritis
     Dosage: UNK, PATIENT ROA: UNKNOWN
  25. ZOPICLONE [Suspect]
     Active Substance: ZOPICLONE
     Indication: Insomnia
     Dosage: UNK, PATIENT ROA: UNKNOWN
  26. ZOPICLONE [Suspect]
     Active Substance: ZOPICLONE
     Indication: Sinusitis
     Dosage: 100 MG, PATIENT ROA: UNKNOWN
  27. ZOPICLONE [Suspect]
     Active Substance: ZOPICLONE
     Indication: Dyslipidaemia
     Dosage: 100 MG, PATIENT ROA: UNKNOWN
  28. ZOPICLONE [Suspect]
     Active Substance: ZOPICLONE
     Dosage: 100 MG, PATIENT ROA: UNKNOWN
  29. ZOPICLONE [Suspect]
     Active Substance: ZOPICLONE
     Dosage: 100 MG, PATIENT ROA: UNKNOWN
  30. ACETAMINOPHEN\PSEUDOEPHEDRINE HYDROCHLORIDE [Concomitant]
     Active Substance: ACETAMINOPHEN\PSEUDOEPHEDRINE HYDROCHLORIDE
     Indication: Product used for unknown indication
     Dosage: UNK, PATIENT ROA: UNKNOWN
  31. ATORVASTATIN CALCIUM [Suspect]
     Active Substance: ATORVASTATIN CALCIUM
     Indication: Dyslipidaemia
     Dosage: UNK, PATIENT ROA: UNKNOWN
  32. ATORVASTATIN CALCIUM [Suspect]
     Active Substance: ATORVASTATIN CALCIUM
     Dosage: UNK, PATIENT ROA: UNKNOWN
  33. GABAPENTIN [Suspect]
     Active Substance: GABAPENTIN
     Indication: Arthralgia
     Dosage: 100 MG, PATIENT ROA: UNKNOWN
  34. GABAPENTIN [Suspect]
     Active Substance: GABAPENTIN
     Dosage: 100 MG, PATIENT ROA: UNKNOWN
  35. LATANOPROST [Suspect]
     Active Substance: LATANOPROST
     Indication: Glaucoma
     Dosage: UNK, PATIENT ROA: OPHTHALMIC
  36. LATANOPROST [Suspect]
     Active Substance: LATANOPROST
     Dosage: UNK, PATIENT ROA: UNKNOWN
  37. LATANOPROST [Suspect]
     Active Substance: LATANOPROST
     Dosage: UNK, PATIENT ROA: UNKNOWN
  38. LATANOPROST [Suspect]
     Active Substance: LATANOPROST
     Dosage: UNK, PATIENT ROA: OPHTHALMIC
  39. PYRIDOXINE [Suspect]
     Active Substance: PYRIDOXINE
     Indication: Rhinitis
     Dosage: UNK (INTRA-NASAL), PATIENT ROA: OTHER
  40. PYRIDOXINE [Suspect]
     Active Substance: PYRIDOXINE
     Dosage: UNK, PATIENT ROA: UNKNOWN
  41. PREGABALIN [Suspect]
     Active Substance: PREGABALIN
     Indication: Arthralgia
     Dosage: 50 MG, PATIENT ROA: UNKNOWN
  42. PREGABALIN [Suspect]
     Active Substance: PREGABALIN
     Dosage: UNK, PATIENT ROA: UNKNOWN
  43. BRINZOLAMIDE\TIMOLOL MALEATE [Suspect]
     Active Substance: BRINZOLAMIDE\TIMOLOL MALEATE
     Indication: Glaucoma
     Dosage: UNK
     Route: 050
  44. BRINZOLAMIDE\TIMOLOL MALEATE [Suspect]
     Active Substance: BRINZOLAMIDE\TIMOLOL MALEATE
     Dosage: UNK, PATIENT ROA: OPHTHALMIC
  45. BRINZOLAMIDE\TIMOLOL MALEATE [Suspect]
     Active Substance: BRINZOLAMIDE\TIMOLOL MALEATE
     Dosage: UNK, PATIENT ROA: UNKNOWN
  46. ESTRADIOL [Suspect]
     Active Substance: ESTRADIOL
     Indication: Product used for unknown indication
     Dosage: UNK, DOSE FORM; PATCH
     Route: 062
  47. AMOXICILLIN TRIHYDRATE [Suspect]
     Active Substance: AMOXICILLIN
     Indication: Sinusitis
     Dosage: UNK, PATIENT ROA: UNKNOWN
  48. CHOLECALCIFEROL [Suspect]
     Active Substance: CHOLECALCIFEROL
     Indication: Product used for unknown indication
     Dosage: UNK, PATIENT ROA: UNKNOWN
  49. PYRIDOXINE HYDROCHLORIDE [Suspect]
     Active Substance: PYRIDOXINE HYDROCHLORIDE
     Indication: Rhinitis
     Dosage: UNK, PATIENT ROA: UNKNOWN
  50. PYRIDOXINE HYDROCHLORIDE [Suspect]
     Active Substance: PYRIDOXINE HYDROCHLORIDE
     Dosage: UNK, PATIENT ROA: UNKNOWN
  51. PYRIDOXINE HYDROCHLORIDE [Suspect]
     Active Substance: PYRIDOXINE HYDROCHLORIDE
     Dosage: UNK (INTRA-NASAL), PATIENT ROA: OTHER
  52. CHOLECALCIFEROL [Suspect]
     Active Substance: CHOLECALCIFEROL
     Indication: Product used for unknown indication
     Dosage: UNK, PATIENT ROA: UNKNOWN
  53. VITAMIN C [Suspect]
     Active Substance: ASCORBIC ACID
     Indication: Product used for unknown indication
     Dosage: UNK, PATIENT ROA: UNKNOWN
  54. VITAMIN A [Suspect]
     Active Substance: VITAMIN A
     Indication: Product used for unknown indication
     Dosage: UNK, PATIENT ROA: UNKNOWN
  55. VITAMIN B6 [Suspect]
     Active Substance: PYRIDOXINE HYDROCHLORIDE
     Indication: Product used for unknown indication
     Dosage: UNK, PATIENT ROA: UNKNOWN
  56. ERGOCALCIFEROL [Suspect]
     Active Substance: ERGOCALCIFEROL
     Indication: Product used for unknown indication
     Dosage: UNK, PATIENT ROA: UNKNOWN
  57. IPRATROPIUM [Concomitant]
     Active Substance: IPRATROPIUM
     Indication: Product used for unknown indication
     Dosage: UNK, PATIENT ROA: UNKNOWN
  58. ACETAMINOPHEN [Suspect]
     Active Substance: ACETAMINOPHEN
     Indication: Product used for unknown indication
     Dosage: UNK, PATIENT ROA: UNKNOWN
  59. ESTRADIOL [Suspect]
     Active Substance: ESTRADIOL
     Indication: Arthralgia
     Dosage: UNK, PATIENT ROA: UNKNOWN
  60. ESTRADIOL [Suspect]
     Active Substance: ESTRADIOL
     Indication: Menopausal symptoms
  61. CHLORPHENIRAMINE MALEATE\PSEUDOEPHEDRINE [Suspect]
     Active Substance: CHLORPHENIRAMINE MALEATE\PSEUDOEPHEDRINE
     Indication: Product used for unknown indication
     Dosage: UNK, PATIENT ROA: UNKNOWN
  62. ATORVASTATIN CALCIUM [Concomitant]
     Active Substance: ATORVASTATIN CALCIUM
     Indication: Dyslipidaemia
     Dosage: UNK, PATIENT ROA: UNKNOWN
  63. ADVIL [Suspect]
     Active Substance: IBUPROFEN
     Indication: Arthralgia
     Dosage: UNK, PATIENT ROA: UNKNOWN
  64. THIAMINE HYDROCHLORIDE [Suspect]
     Active Substance: THIAMINE HYDROCHLORIDE
     Indication: Product used for unknown indication
     Dosage: UNK, PATIENT ROA: UNKNOWN

REACTIONS (7)
  - Toxic epidermal necrolysis [Recovered/Resolved]
  - Haemoglobin decreased [Recovered/Resolved]
  - Off label use [Recovered/Resolved]
  - Rash erythematous [Recovered/Resolved]
  - Rash papular [Recovered/Resolved]
  - Nikolsky^s sign test [Recovered/Resolved]
  - Epidermal necrosis [Recovered/Resolved]
